FAERS Safety Report 20186249 (Version 1)
Quarter: 2021Q4

REPORT INFORMATION
  Report Type: Spontaneous
  Country: CA (occurrence: CA)
  Receive Date: 20211215
  Receipt Date: 20211215
  Transmission Date: 20220303
  Serious: Yes (Death, Other)
  Sender: FDA-Public Use
  Company Number: CA-SA-2021SA414225

PATIENT
  Age: 4 Month
  Sex: Male

DRUGS (5)
  1. FLUDARABINE PHOSPHATE [Suspect]
     Active Substance: FLUDARABINE PHOSPHATE
     Indication: Bone marrow conditioning regimen
     Dosage: 40 MG/M2, QD FROM DAY ?7 TO DAY ?4
  2. ANTI-THYMOCYTE GLOBULIN (RABBIT) NOS [Suspect]
     Active Substance: LAPINE T-LYMPHOCYTE IMMUNE GLOBULIN
     Indication: Bone marrow conditioning regimen
     Dosage: 1.2 MG/KG, QD FROM DAY ?5 TO DAY ?3
  3. TREOSULFAN [Suspect]
     Active Substance: TREOSULFAN
     Indication: Bone marrow conditioning regimen
     Dosage: 12 MG/M2, QD FROM DAY ?7 TO DAY ?5
  4. THIOTEPA [Suspect]
     Active Substance: THIOTEPA
     Indication: Bone marrow conditioning regimen
     Dosage: 2 DOSES OF 5 MG/KG/DOSE OF THIOTEPA ON DAY ?4
  5. RITUXIMAB [Suspect]
     Active Substance: RITUXIMAB
     Indication: Bone marrow conditioning regimen
     Dosage: 200 MG/M2 ON DAY ?1

REACTIONS (4)
  - Posterior reversible encephalopathy syndrome [Fatal]
  - Haemorrhage intracranial [Fatal]
  - Off label use [Unknown]
  - Off label use [Unknown]
